FAERS Safety Report 5167947-2 (Version None)
Quarter: 2006Q4

REPORT INFORMATION
  Report Type: 
  Country: None (occurrence: None)
  Receive Date: 20061208
  Receipt Date: 20051104
  Transmission Date: 20070319
  Serious: No
  Sender: FDA-Public Use
  Company Number: US-GLAXOSMITHKLINE-A0580944A

PATIENT
  Age: 63 Year
  Sex: Male

DRUGS (5)
  1. AVANDAMET [Suspect]
     Route: 048
     Dates: start: 20050523
  2. COREG [Concomitant]
  3. PRAVACHOL [Concomitant]
  4. PLAVIX [Concomitant]
  5. TEBETANE [Concomitant]
     Route: 065

REACTIONS (2)
  - PRURITUS [None]
  - RASH [None]
